FAERS Safety Report 20854926 (Version 1)
Quarter: 2022Q2

REPORT INFORMATION
  Report Type: Spontaneous
  Country: CZ (occurrence: CZ)
  Receive Date: 20220520
  Receipt Date: 20220520
  Transmission Date: 20220721
  Serious: Yes (Other)
  Sender: FDA-Public Use
  Company Number: None

PATIENT
  Age: 77 Year
  Sex: Female

DRUGS (8)
  1. DUPIXENT [Suspect]
     Active Substance: DUPILUMAB
     Indication: Dermatitis atopic
     Dosage: 300 MG
     Route: 058
  2. LEVOTHYROXINE SODIUM [Concomitant]
     Active Substance: LEVOTHYROXINE SODIUM
     Dosage: 75 MG; 1-0-0
     Route: 048
  3. ALLOPURINOL [Concomitant]
     Active Substance: ALLOPURINOL
     Dosage: 100 MG; 1-0-0
     Route: 048
  4. METOPROLOL TARTRATE [Concomitant]
     Active Substance: METOPROLOL TARTRATE
     Dosage: 200 MG; 1/2-0-0
     Route: 048
  5. HELICIDI [Concomitant]
     Dosage: 20 MG; 1-0-0
     Route: 048
  6. BILASTINE [Concomitant]
     Active Substance: BILASTINE
     Dosage: 20 MG; 1-0-0
     Route: 048
  7. LOZAP [LOSARTAN POTASSIUM] [Concomitant]
     Dosage: 50 MG; 1/2-0-1/2
     Route: 048
  8. VENTOLIN [Concomitant]
     Active Substance: ALBUTEROL SULFATE
     Dosage: 100 MG; 1 INHALATION WHEN DYSPNOEIC
     Route: 055

REACTIONS (7)
  - Pain of skin [Unknown]
  - Skin mass [Unknown]
  - Puncture site swelling [Unknown]
  - Puncture site erythema [Unknown]
  - Pyrexia [Unknown]
  - Fatigue [Unknown]
  - Rash [Unknown]

NARRATIVE: CASE EVENT DATE: 20210101
